FAERS Safety Report 7792698-5 (Version None)
Quarter: 2011Q4

REPORT INFORMATION
  Report Type: 
  Country: None (occurrence: None)
  Receive Date: 20111003
  Receipt Date: 20110926
  Transmission Date: 20120403
  Serious: Yes (Hospitalization)
  Sender: FDA-Public Use
  Company Number: FR-MERCK-1109FRA00107

PATIENT
  Age: 53 Year
  Sex: Male
  Weight: 117 kg

DRUGS (8)
  1. JANUVIA [Suspect]
     Indication: TYPE 2 DIABETES MELLITUS
     Route: 048
     Dates: start: 20100209, end: 20110504
  2. GLICLAZIDE [Concomitant]
     Route: 048
     Dates: start: 20110505, end: 20110630
  3. JANUVIA [Suspect]
     Route: 048
     Dates: start: 20110701
  4. METFORMIN [Concomitant]
     Indication: TYPE 2 DIABETES MELLITUS
     Route: 048
     Dates: end: 20110504
  5. METFORMIN [Concomitant]
     Route: 048
     Dates: start: 20110505, end: 20110630
  6. JANUMET [Concomitant]
     Indication: TYPE 2 DIABETES MELLITUS
     Route: 048
     Dates: start: 20110505, end: 20110630
  7. GLICLAZIDE [Concomitant]
     Indication: TYPE 2 DIABETES MELLITUS
     Route: 048
     Dates: start: 20100101, end: 20110504
  8. METFORMIN [Concomitant]
     Route: 048
     Dates: start: 20110701

REACTIONS (2)
  - LUNG ADENOCARCINOMA METASTATIC [None]
  - LOWER LIMB FRACTURE [None]
